FAERS Safety Report 23625860 (Version 1)
Quarter: 2024Q1

REPORT INFORMATION
  Report Type: Spontaneous
  Country: US (occurrence: US)
  Receive Date: 20240313
  Receipt Date: 20240313
  Transmission Date: 20240410
  Serious: No
  Sender: FDA-Public Use
  Company Number: US-BAYER-2024A031215

PATIENT
  Age: 75 Year
  Sex: Female

DRUGS (1)
  1. MIRALAX [Suspect]
     Active Substance: POLYETHYLENE GLYCOL 3350
     Indication: Preoperative care
     Dosage: HALF A TABLESPOON
     Route: 048
     Dates: start: 20240227

REACTIONS (3)
  - Nausea [None]
  - Wrong technique in product usage process [None]
  - Product use in unapproved indication [None]

NARRATIVE: CASE EVENT DATE: 20240227
